FAERS Safety Report 19588407 (Version 2)
Quarter: 2021Q3

REPORT INFORMATION
  Report Type: Spontaneous
  Country: IE (occurrence: IE)
  Receive Date: 20210721
  Receipt Date: 20210802
  Transmission Date: 20211014
  Serious: Yes (Hospitalization, Other)
  Sender: FDA-Public Use
  Company Number: IE-ACCORD-232087

PATIENT
  Age: 59 Year
  Sex: Female

DRUGS (11)
  1. MYCOPHENOLIC ACID. [Suspect]
     Active Substance: MYCOPHENOLIC ACID
     Indication: IMMUNOSUPPRESSION
  2. TACROLIMUS. [Interacting]
     Active Substance: TACROLIMUS
     Indication: IMMUNOSUPPRESSION
  3. ENOXAPARIN [Concomitant]
     Active Substance: ENOXAPARIN
  4. PIPERACILLIN/TAZOBACTAM [Concomitant]
     Active Substance: PIPERACILLIN SODIUM\TAZOBACTAM SODIUM
     Indication: EVIDENCE BASED TREATMENT
  5. FLUCONAZOLE. [Interacting]
     Active Substance: FLUCONAZOLE
     Indication: ANTIFUNGAL TREATMENT
     Dosage: LIFELONG
     Route: 048
  6. TAMOXIFEN [Concomitant]
     Active Substance: TAMOXIFEN
     Indication: BREAST CANCER
  7. AMPHOTERICIN B. [Concomitant]
     Active Substance: AMPHOTERICIN B
     Route: 042
  8. FLUCYTOSINE. [Concomitant]
     Active Substance: FLUCYTOSINE
     Route: 048
  9. HEPARIN [Concomitant]
     Active Substance: HEPARIN SODIUM
     Indication: PULMONARY EMBOLISM
  10. CASPOFUNGIN [Concomitant]
     Active Substance: CASPOFUNGIN
     Route: 042
  11. MIDODRINE [Concomitant]
     Active Substance: MIDODRINE
     Indication: LABILE BLOOD PRESSURE

REACTIONS (13)
  - Drug interaction [Unknown]
  - Tricuspid valve stenosis [Recovering/Resolving]
  - Candida infection [Recovered/Resolved]
  - Decreased appetite [Recovered/Resolved]
  - Sepsis [Recovered/Resolved]
  - Pulmonary embolism [Recovering/Resolving]
  - Urinary tract infection [Recovered/Resolved]
  - Acute kidney injury [Recovered/Resolved]
  - Perforation [Recovering/Resolving]
  - Drug level increased [Recovering/Resolving]
  - Depressed mood [Recovered/Resolved]
  - Confusional state [Recovered/Resolved]
  - Fall [Recovering/Resolving]
